FAERS Safety Report 9293552 (Version 2)
Quarter: 2014Q2

REPORT INFORMATION
  Report Type: Report from Study
  Country: MX (occurrence: MX)
  Receive Date: 20130516
  Receipt Date: 20140516
  Transmission Date: 20141212
  Serious: Yes (Other)
  Sender: FDA-Public Use
  Company Number: MX-GLAXOSMITHKLINE-B0891312A

PATIENT
  Age: 25 Year
  Sex: Male

DRUGS (1)
  1. RETIGABINE [Suspect]
     Indication: PARTIAL SEIZURES
     Dosage: 1050MG PER DAY
     Route: 048
     Dates: start: 20070724

REACTIONS (1)
  - Retinal degeneration [Not Recovered/Not Resolved]
